FAERS Safety Report 10456207 (Version 3)
Quarter: 2014Q4

REPORT INFORMATION
  Report Type: Spontaneous
  Country: DE (occurrence: DE)
  Receive Date: 20140916
  Receipt Date: 20141028
  Transmission Date: 20150528
  Serious: Yes (Hospitalization)
  Sender: FDA-Public Use
  Company Number: DE-ASTELLAS-2014EU012449

PATIENT
  Age: 78 Year
  Sex: Male

DRUGS (1)
  1. BETMIGA [Suspect]
     Active Substance: MIRABEGRON
     Indication: HYPERTONIC BLADDER
     Dosage: ONE DOSE ONCE DAILY
     Route: 048
     Dates: start: 20140612, end: 20140909

REACTIONS (1)
  - Atrial flutter [Recovered/Resolved]
